FAERS Safety Report 7700097-7 (Version None)
Quarter: 2011Q3

REPORT INFORMATION
  Report Type: 
  Country: None (occurrence: None)
  Receive Date: 20110822
  Receipt Date: 20110803
  Transmission Date: 20111222
  Serious: Yes (Hospitalization, Other)
  Sender: FDA-Public Use
  Company Number: US-US-EMD SERONO, INC.-7074958

PATIENT
  Sex: Male
  Weight: 41 kg

DRUGS (10)
  1. SAIZEN [Suspect]
     Dates: start: 20090416, end: 20110411
  2. SYNTHROID [Concomitant]
     Indication: HYPOPITUITARISM
     Route: 048
     Dates: start: 20040112
  3. DIFFERIN [Concomitant]
  4. CORTEF [Concomitant]
     Dates: start: 20030206
  5. DUAC CS GEL [Concomitant]
  6. SYNTHROID [Concomitant]
  7. SAIZEN [Suspect]
     Indication: PRODUCT USED FOR UNKNOWN INDICATION
     Dates: start: 20051207, end: 20080226
  8. ZOFRAN [Concomitant]
  9. CORTEF [Concomitant]
     Indication: ADRENAL INSUFFICIENCY
     Route: 048
     Dates: start: 20030206
  10. VISTARIL [Concomitant]

REACTIONS (2)
  - BASAL CELL CARCINOMA [None]
  - DESMOID TUMOUR [None]
